FAERS Safety Report 5599676-5 (Version None)
Quarter: 2008Q1

REPORT INFORMATION
  Report Type: 
  Country: None (occurrence: None)
  Receive Date: 20080123
  Receipt Date: 20080114
  Transmission Date: 20080703
  Serious: Yes (Other)
  Sender: FDA-Public Use
  Company Number: US-JNJFOC-20080103823

PATIENT
  Sex: Female
  Weight: 61.24 kg

DRUGS (3)
  1. DURAGESIC-100 [Suspect]
     Indication: PAIN
     Route: 062
  2. COZAAR [Concomitant]
     Route: 048
  3. AMBIEN CR [Concomitant]
     Route: 048

REACTIONS (3)
  - AMNESIA [None]
  - DIABETES MELLITUS [None]
  - PAIN IN EXTREMITY [None]
